FAERS Safety Report 6099293-7 (Version None)
Quarter: 2009Q1

REPORT INFORMATION
  Report Type: 
  Country: None (occurrence: None)
  Receive Date: 20090303
  Receipt Date: 20090223
  Transmission Date: 20090719
  Serious: Yes (Other)
  Sender: FDA-Public Use
  Company Number: KR-JNJFOC-20090206260

PATIENT
  Sex: Male

DRUGS (3)
  1. RISPERDAL [Suspect]
     Indication: CEREBRAL HAEMORRHAGE
     Route: 048
  2. PHENYTOIN [Suspect]
     Indication: CEREBRAL HAEMORRHAGE
     Route: 048
  3. PARIET [Concomitant]
     Indication: GASTROINTESTINAL DISORDER
     Route: 048

REACTIONS (5)
  - DEPRESSION [None]
  - ERECTILE DYSFUNCTION [None]
  - LIBIDO DECREASED [None]
  - OFF LABEL USE [None]
  - WEIGHT DECREASED [None]
